FAERS Safety Report 9119218 (Version 1)
Quarter: 2013Q1

REPORT INFORMATION
  Report Type: Spontaneous
  Country: US (occurrence: None)
  Receive Date: 20130221
  Receipt Date: 20130221
  Transmission Date: 20140127
  Serious: Yes (Hospitalization)
  Sender: FDA-Public Use
  Company Number: None

PATIENT
  Age: 48 Year
  Sex: Female

DRUGS (2)
  1. AFINITOR [Suspect]
     Indication: BREAST CANCER
     Route: 048
     Dates: start: 20130205
  2. EXEMESTANE [Concomitant]

REACTIONS (4)
  - Fatigue [None]
  - Pyrexia [None]
  - Abdominal pain upper [None]
  - Pneumonia [None]
